FAERS Safety Report 23351747 (Version 1)
Quarter: 2023Q4

REPORT INFORMATION
  Report Type: Spontaneous
  Country: IT (occurrence: IT)
  Receive Date: 20231229
  Receipt Date: 20231229
  Transmission Date: 20240110
  Serious: Yes (Death, Hospitalization, Other)
  Sender: FDA-Public Use
  Company Number: None

PATIENT
  Age: 67 Year
  Sex: Female

DRUGS (4)
  1. OPDIVO [Suspect]
     Active Substance: NIVOLUMAB
     Indication: Metastasis
     Route: 042
     Dates: start: 20231011, end: 20231206
  2. OPDIVO [Suspect]
     Active Substance: NIVOLUMAB
     Indication: Gastric cancer
  3. FLUOROURACIL [Concomitant]
     Active Substance: FLUOROURACIL
     Indication: Gastric cancer
     Route: 042
     Dates: start: 20231011, end: 20231206
  4. FLUOROURACIL [Concomitant]
     Active Substance: FLUOROURACIL
     Indication: Metastasis

REACTIONS (6)
  - Blood urea increased [Fatal]
  - Alanine aminotransferase increased [Fatal]
  - Blood creatinine increased [Fatal]
  - Hypertransaminasaemia [Fatal]
  - Aspartate aminotransferase increased [Fatal]
  - Renal failure [Fatal]

NARRATIVE: CASE EVENT DATE: 20231207
